FAERS Safety Report 4478366-6 (Version None)
Quarter: 2004Q3

REPORT INFORMATION
  Report Type: 
  Country: None (occurrence: None)
  Receive Date: 20040923
  Receipt Date: 20040713
  Transmission Date: 20050211
  Serious: No
  Sender: FDA-Public Use
  Company Number: USA040670982

PATIENT
  Age: 68 Year
  Sex: Female

DRUGS (2)
  1. EVISTA [Suspect]
     Indication: OSTEOPOROSIS
     Dosage: 60 UG DAY
     Dates: end: 20040101
  2. FORTEO [Suspect]
     Indication: OSTEOPOROSIS
     Dates: start: 20040628

REACTIONS (3)
  - INJECTION SITE ERYTHEMA [None]
  - MUSCLE CRAMP [None]
  - SLEEP DISORDER [None]
